FAERS Safety Report 8418605-X (Version None)
Quarter: 2012Q2

REPORT INFORMATION
  Report Type: 
  Country: None (occurrence: None)
  Receive Date: 20120607
  Receipt Date: 20120530
  Transmission Date: 20120825
  Serious: Yes (Hospitalization)
  Sender: FDA-Public Use
  Company Number: US-ASTRAZENECA-2011SE41526

PATIENT
  Age: 55 Year
  Sex: Female

DRUGS (1)
  1. NEXIUM [Suspect]
     Dosage: ONCE OR TWICE A DAY
     Route: 048
     Dates: start: 20040101

REACTIONS (2)
  - ANKLE FRACTURE [None]
  - OSTEOPOROSIS [None]
